FAERS Safety Report 25648868 (Version 1)
Quarter: 2025Q3

REPORT INFORMATION
  Report Type: Spontaneous
  Country: US (occurrence: US)
  Receive Date: 20250806
  Receipt Date: 20250806
  Transmission Date: 20251021
  Serious: No
  Sender: LUPIN
  Company Number: US-LUPIN PHARMACEUTICALS INC.-2025-06810

PATIENT
  Age: 37 Year

DRUGS (1)
  1. TOLVAPTAN [Suspect]
     Active Substance: TOLVAPTAN
     Indication: Product used for unknown indication
     Dosage: 15 MILLIGRAM, BID

REACTIONS (7)
  - Pain [Unknown]
  - Blood electrolytes abnormal [Unknown]
  - Muscle spasms [Unknown]
  - Taste disorder [Unknown]
  - Pollakiuria [Unknown]
  - Insomnia [Unknown]
  - Loss of personal independence in daily activities [Unknown]
